FAERS Safety Report 15792699 (Version 1)
Quarter: 2019Q1

REPORT INFORMATION
  Report Type: Spontaneous
  Country: US (occurrence: US)
  Receive Date: 20190107
  Receipt Date: 20190107
  Transmission Date: 20190417
  Serious: No
  Sender: FDA-Public Use
  Company Number: US-ASTRAZENECA-2019SE00783

PATIENT
  Age: 843 Month
  Sex: Female
  Weight: 111.1 kg

DRUGS (2)
  1. SYMBICORT [Suspect]
     Active Substance: BUDESONIDE\FORMOTEROL FUMARATE DIHYDRATE
     Indication: CHRONIC OBSTRUCTIVE PULMONARY DISEASE
     Dosage: 160/4.5 UG TWO PUFFS, TWO TIMES A DAY
     Route: 055
     Dates: start: 201711
  2. MUCINEX [Concomitant]
     Active Substance: GUAIFENESIN
     Dates: start: 201811

REACTIONS (11)
  - Condition aggravated [Not Recovered/Not Resolved]
  - Abdominal pain upper [Unknown]
  - Heart rate irregular [Unknown]
  - Dysphagia [Unknown]
  - Back pain [Not Recovered/Not Resolved]
  - Dysstasia [Unknown]
  - Dyspnoea [Unknown]
  - Pharyngeal disorder [Not Recovered/Not Resolved]
  - Gait disturbance [Unknown]
  - Lung disorder [Unknown]
  - Product dose omission [Unknown]

NARRATIVE: CASE EVENT DATE: 201810
